FAERS Safety Report 6641904-9 (Version None)
Quarter: 2010Q1

REPORT INFORMATION
  Report Type: 
  Country: None (occurrence: None)
  Receive Date: 20100319
  Receipt Date: 20100308
  Transmission Date: 20100710
  Serious: Yes (Hospitalization)
  Sender: FDA-Public Use
  Company Number: US-SANOFI-AVENTIS-2010SA013634

PATIENT
  Age: 62 Year
  Sex: Female
  Weight: 215.5 kg

DRUGS (2)
  1. LANTUS [Suspect]
     Indication: TYPE 2 DIABETES MELLITUS
     Route: 058
     Dates: start: 20080801, end: 20090801
  2. SOLOSTAR [Suspect]
     Indication: TYPE 2 DIABETES MELLITUS
     Dates: start: 20080801, end: 20090801

REACTIONS (3)
  - CHONDROPATHY [None]
  - CONDITION AGGRAVATED [None]
  - FALL [None]
